FAERS Safety Report 7059626-1 (Version None)
Quarter: 2010Q4

REPORT INFORMATION
  Report Type: 
  Country: None (occurrence: None)
  Receive Date: 20101025
  Receipt Date: 20101015
  Transmission Date: 20110411
  Serious: Yes (Other)
  Sender: FDA-Public Use
  Company Number: CA-ASTRAZENECA-2010SE38670

PATIENT
  Age: 43 Year
  Sex: Female

DRUGS (6)
  1. ARIMIDEX [Suspect]
     Indication: BREAST CANCER
     Route: 048
     Dates: start: 20000701, end: 20100701
  2. ZOLADEX [Concomitant]
     Route: 058
     Dates: start: 20081018
  3. LUSTRAL [Concomitant]
     Indication: DEPRESSION
     Dates: start: 20090608
  4. RELLEN [Concomitant]
     Indication: PAIN
     Dates: start: 20100629
  5. SALAMOL [Concomitant]
     Dosage: 2 PUFFS PRN
     Route: 055
  6. AMLIST [Concomitant]

REACTIONS (4)
  - JOINT STIFFNESS [None]
  - PAIN IN EXTREMITY [None]
  - PARAESTHESIA [None]
  - TENDONITIS [None]
